FAERS Safety Report 5095367-8 (Version None)
Quarter: 2006Q3

REPORT INFORMATION
  Report Type: 
  Country: None (occurrence: None)
  Receive Date: 20060830
  Receipt Date: 20060816
  Transmission Date: 20061208
  Serious: Yes (Hospitalization)
  Sender: FDA-Public Use
  Company Number: US200608004475

PATIENT
  Sex: Female

DRUGS (8)
  1. FORTEO [Suspect]
     Indication: OSTEOPOROSIS
     Dosage: SEE IMAGE
     Dates: start: 20040903
  2. FORTEO [Concomitant]
  3. BISOPROLOL FUMARATE [Concomitant]
  4. ALLOPURINOL [Concomitant]
  5. ASPIRIN [Concomitant]
  6. PRILOSEC [Concomitant]
  7. CALCIUM CARBONATE [Concomitant]
  8. CRESTOR [Concomitant]

REACTIONS (6)
  - DRUG EFFECT DECREASED [None]
  - FALL [None]
  - LACERATION [None]
  - PAIN [None]
  - PERIORBITAL HAEMATOMA [None]
  - VIRAL INFECTION [None]
